FAERS Safety Report 5219706-X (Version None)
Quarter: 2007Q1

REPORT INFORMATION
  Report Type: 
  Country: None (occurrence: None)
  Receive Date: 20070125
  Receipt Date: 20070119
  Transmission Date: 20070707
  Serious: Yes (Other)
  Sender: FDA-Public Use
  Company Number: US-PFIZER INC-2006147288

PATIENT
  Age: 52 Year
  Sex: Male
  Weight: 88.9 kg

DRUGS (1)
  1. LYRICA [Suspect]
     Indication: SCIATICA
     Dates: start: 20061005, end: 20061005

REACTIONS (1)
  - HEART RATE INCREASED [None]
